FAERS Safety Report 13166519 (Version 1)
Quarter: 2017Q1

REPORT INFORMATION
  Report Type: Spontaneous
  Country: US (occurrence: US)
  Receive Date: 20170126
  Receipt Date: 20170126
  Transmission Date: 20170428
  Serious: Yes (Disabling)
  Sender: FDA-Public Use
  Company Number: None

PATIENT
  Age: 56 Year
  Sex: Female
  Weight: 58 kg

DRUGS (2)
  1. TACROLIMUS OINTMENT 0.1% FOUGERA [Suspect]
     Active Substance: TACROLIMUS
     Indication: ECZEMA
     Route: 061
     Dates: start: 20161229, end: 20170104
  2. CALCIUM/MAGNESIUM/ZINC VITAMIN [Concomitant]

REACTIONS (2)
  - Herpes zoster [None]
  - Musculoskeletal stiffness [None]

NARRATIVE: CASE EVENT DATE: 20170109
